FAERS Safety Report 9252216 (Version 2)
Quarter: 2013Q2

REPORT INFORMATION
  Report Type: Spontaneous
  Country: CN (occurrence: CN)
  Receive Date: 20130424
  Receipt Date: 20130517
  Transmission Date: 20140414
  Serious: Yes (Life-Threatening, Hospitalization)
  Sender: FDA-Public Use
  Company Number: CN-BAYER-2013-048973

PATIENT
  Age: 71 Year
  Sex: Male

DRUGS (3)
  1. MOXIFLOXACIN IV [Suspect]
     Indication: LUNG INFECTION
     Dosage: 0.4 G, UNK
     Route: 041
     Dates: start: 20100624
  2. PIPERACILLIN SODIUM [Concomitant]
     Indication: LUNG INFECTION
     Dosage: 5 G, UNK
  3. SULBACTAM [Concomitant]
     Indication: LUNG INFECTION
     Dosage: 5 G, UNK

REACTIONS (5)
  - Cardiac disorder [Recovering/Resolving]
  - Hepatic function abnormal [Recovering/Resolving]
  - Renal impairment [Recovering/Resolving]
  - Pneumonia [None]
  - Hypersensitivity [None]
